FAERS Safety Report 10271893 (Version 1)
Quarter: 2014Q3

REPORT INFORMATION
  Report Type: Spontaneous
  Country: AR (occurrence: AR)
  Receive Date: 20140702
  Receipt Date: 20140702
  Transmission Date: 20150326
  Serious: Yes (Other)
  Sender: FDA-Public Use
  Company Number: CHPA2014AR008831

PATIENT
  Sex: Female

DRUGS (4)
  1. NICOTINELL [Suspect]
     Active Substance: NICOTINE
     Indication: OFF LABEL USE
  2. NICOTINE TRANSDERMAL SYSTEM [Suspect]
     Active Substance: NICOTINE
     Indication: OFF LABEL USE
  3. NICOTINELL [Suspect]
     Active Substance: NICOTINE
     Indication: EMPHYSEMA
     Route: 048
  4. NICOTINE TRANSDERMAL SYSTEM [Suspect]
     Active Substance: NICOTINE
     Indication: EMPHYSEMA
     Dosage: UNK
     Route: 062
     Dates: start: 2013

REACTIONS (1)
  - Coma [Unknown]

NARRATIVE: CASE EVENT DATE: 2013
